FAERS Safety Report 8408201-2 (Version None)
Quarter: 2012Q2

REPORT INFORMATION
  Report Type: 
  Country: None (occurrence: None)
  Receive Date: 20120531
  Receipt Date: 20120531
  Transmission Date: 20120825
  Serious: Yes (Hospitalization)
  Sender: FDA-Public Use
  Company Number: None

PATIENT
  Age: 54 Year
  Sex: Male
  Weight: 77.1115 kg

DRUGS (1)
  1. LEVOTHYROXINE SODIUM [Suspect]
     Indication: RASH
     Dates: start: 20120406, end: 20120423

REACTIONS (2)
  - DRUG DISPENSING ERROR [None]
  - DOCUMENTED HYPERSENSITIVITY TO ADMINISTERED DRUG [None]
